FAERS Safety Report 8273784-2 (Version None)
Quarter: 2012Q2

REPORT INFORMATION
  Report Type: 
  Country: None (occurrence: None)
  Receive Date: 20120411
  Receipt Date: 20120402
  Transmission Date: 20120825
  Serious: Yes (Hospitalization)
  Sender: FDA-Public Use
  Company Number: CA-FRI-1000029696

PATIENT
  Age: 57 Year
  Sex: Male
  Weight: 90.72 kg

DRUGS (6)
  1. ASPIRIN [Concomitant]
  2. ESCITALOPRAM [Suspect]
     Dosage: 10 MG
     Route: 048
  3. MONOPRIL [Concomitant]
  4. VIAGRA [Concomitant]
  5. HYDROCHLOROTHIAZIDE [Concomitant]
  6. PRILOSEC [Concomitant]

REACTIONS (11)
  - TREMOR [None]
  - DECREASED APPETITE [None]
  - PALPITATIONS [None]
  - ASTHENIA [None]
  - DIZZINESS [None]
  - BLOOD PRESSURE INCREASED [None]
  - FATIGUE [None]
  - INSOMNIA [None]
  - CONDITION AGGRAVATED [None]
  - MUSCLE SPASMS [None]
  - NAUSEA [None]
